FAERS Safety Report 6999562-X (Version None)
Quarter: 2010Q3

REPORT INFORMATION
  Report Type: 
  Country: None (occurrence: None)
  Receive Date: 20100920
  Receipt Date: 20100908
  Transmission Date: 20110219
  Serious: Yes (Other)
  Sender: FDA-Public Use
  Company Number: PHFR2010GB03711

PATIENT
  Age: 12 Year
  Sex: Female
  Weight: 30 kg

DRUGS (2)
  1. EXJADE [Suspect]
     Dosage: 500 MG DAILY
     Dates: start: 20090101
  2. EXJADE [Suspect]
     Dosage: 625 MG

REACTIONS (1)
  - PANCREATITIS [None]
